FAERS Safety Report 18538591 (Version 2)
Quarter: 2020Q4

REPORT INFORMATION
  Report Type: Spontaneous
  Country: JP (occurrence: JP)
  Receive Date: 20201124
  Receipt Date: 20201202
  Transmission Date: 20210114
  Serious: Yes (Other)
  Sender: FDA-Public Use
  Company Number: JP-GLAXOSMITHKLINE-JP2020227052

PATIENT
  Age: 79 Year
  Sex: Female

DRUGS (1)
  1. ZOVIRAX [Suspect]
     Active Substance: ACYCLOVIR
     Indication: HERPES VIRUS INFECTION
     Dosage: 250 MG, QD
     Route: 042
     Dates: start: 20201114, end: 20201118

REACTIONS (2)
  - Platelet count decreased [Unknown]
  - Pancytopenia [Unknown]
